FAERS Safety Report 7635695-2 (Version None)
Quarter: 2011Q3

REPORT INFORMATION
  Report Type: 
  Country: None (occurrence: None)
  Receive Date: 20110726
  Receipt Date: 20110720
  Transmission Date: 20111222
  Serious: Yes (Death)
  Sender: FDA-Public Use
  Company Number: PHHY2011DE46256

PATIENT
  Sex: Male
  Weight: 65 kg

DRUGS (8)
  1. VOLTAREN [Suspect]
     Indication: NECK PAIN
     Dosage: 1 DF, AT 5.30PM
     Route: 048
     Dates: start: 20071111
  2. VALORON [Concomitant]
     Dosage: AS NEEDED
  3. METOPROLOL TARTRATE [Concomitant]
     Dosage: 0.5 DF, IN MORNING
     Route: 048
  4. VOLTAREN [Suspect]
     Indication: NECK PAIN
     Dosage: 1 DF, IN MORNING
     Route: 048
     Dates: end: 20071110
  5. ISOSORBIDE DINITRATE [Concomitant]
     Dosage: 1 DF, BID
     Route: 048
  6. ZOCOR [Concomitant]
     Dosage: 1 DF, QD IN EVENING
     Route: 048
  7. PLAVIX [Concomitant]
     Dosage: 1 DF, AT NOON
     Route: 048
  8. CORVATON [Concomitant]
     Dosage: 8 MG, IN EVENING
     Route: 048

REACTIONS (10)
  - SEPTIC SHOCK [None]
  - INFECTIOUS PERITONITIS [None]
  - ABDOMINAL PAIN UPPER [None]
  - CARDIAC ARREST [None]
  - SEPSIS [None]
  - VENTRICULAR FIBRILLATION [None]
  - ULCER [None]
  - ASCITES [None]
  - GASTRIC PERFORATION [None]
  - ABDOMINAL DISCOMFORT [None]
